FAERS Safety Report 24238526 (Version 1)
Quarter: 2024Q3

REPORT INFORMATION
  Report Type: Spontaneous
  Country: US (occurrence: US)
  Receive Date: 20240822
  Receipt Date: 20240822
  Transmission Date: 20241017
  Serious: No
  Sender: INSUD PHARMA
  Company Number: US-INSUD PHARMA-2408US06279

PATIENT

DRUGS (1)
  1. SLYND [Suspect]
     Active Substance: DROSPIRENONE
     Indication: Androgens increased
     Dosage: UNKNOWN
     Route: 048

REACTIONS (3)
  - Blood aldosterone increased [Unknown]
  - Hair growth abnormal [Unknown]
  - Product use in unapproved indication [Unknown]
